FAERS Safety Report 7666305-6 (Version None)
Quarter: 2011Q3

REPORT INFORMATION
  Report Type: 
  Country: None (occurrence: None)
  Receive Date: 20110806
  Receipt Date: 20110627
  Transmission Date: 20111222
  Serious: No
  Sender: FDA-Public Use
  Company Number: US-ABBOTT-11P-163-0834824-00

PATIENT
  Sex: Male

DRUGS (2)
  1. NIASPAN [Suspect]
     Route: 048
     Dates: start: 20100501
  2. NIASPAN [Suspect]
     Indication: LOW DENSITY LIPOPROTEIN INCREASED
     Route: 048
     Dates: start: 20090101, end: 20100501

REACTIONS (3)
  - FLUSHING [None]
  - HOT FLUSH [None]
  - HYPERHIDROSIS [None]
